FAERS Safety Report 7811567-5 (Version None)
Quarter: 2011Q4

REPORT INFORMATION
  Report Type: 
  Country: None (occurrence: None)
  Receive Date: 20111013
  Receipt Date: 20111006
  Transmission Date: 20120403
  Serious: Yes (Other)
  Sender: FDA-Public Use
  Company Number: GB-PFIZER INC-2011238817

PATIENT
  Age: 26 Day

DRUGS (4)
  1. RANITIDINE [Concomitant]
  2. REVATIO [Suspect]
     Dosage: UNK
     Dates: start: 20110101
  3. SPIRONOLACTONE [Concomitant]
  4. FUROSEMIDE [Concomitant]

REACTIONS (1)
  - LIVER FUNCTION TEST ABNORMAL [None]
